FAERS Safety Report 16718729 (Version 1)
Quarter: 2019Q3

REPORT INFORMATION
  Report Type: Spontaneous
  Country: AT (occurrence: AT)
  Receive Date: 20190820
  Receipt Date: 20190820
  Transmission Date: 20191005
  Serious: Yes (Hospitalization)
  Sender: FDA-Public Use
  Company Number: AT-009507513-1908AUT005407

PATIENT
  Age: 87 Year
  Sex: Female

DRUGS (10)
  1. NOMEXOR [Concomitant]
     Active Substance: NEBIVOLOL HYDROCHLORIDE
     Route: 048
  2. EUTHYROX [Concomitant]
     Active Substance: LEVOTHYROXINE SODIUM
     Route: 048
  3. SERTRALIN GENERICON [Concomitant]
     Route: 048
  4. PANTOLOC [Concomitant]
     Active Substance: PANTOPRAZOLE SODIUM
     Route: 048
  5. INHIBACE PLUS [Concomitant]
     Active Substance: CILAZAPRIL ANHYDROUS\HYDROCHLOROTHIAZIDE
     Route: 048
  6. THROMBO ASS [Concomitant]
     Active Substance: ASPIRIN
     Route: 048
  7. NOVOMIX 30 [Concomitant]
     Active Substance: INSULIN ASPART
     Dosage: 100 E/ ML, INJECTION SUSPENSION IN PRE-FILLED INJECTOR
     Route: 058
  8. LOVENOX [Concomitant]
     Active Substance: ENOXAPARIN SODIUM
     Dosage: STRENGTH: 4.000 IE (40 MG)/0.4 ML
     Route: 058
  9. JANUMET [Suspect]
     Active Substance: METFORMIN HYDROCHLORIDE\SITAGLIPTIN PHOSPHATE
     Dosage: UNK UNK, BID
     Route: 048
     Dates: start: 20190420, end: 20190622
  10. FEMARA [Concomitant]
     Active Substance: LETROZOLE
     Route: 048

REACTIONS (8)
  - Hypophosphataemia [Recovered/Resolved]
  - Leukocytosis [Recovered/Resolved]
  - Asthenia [Recovered/Resolved]
  - Hyperlactacidaemia [Recovered/Resolved]
  - Renal impairment [Recovered/Resolved]
  - Liver function test increased [Recovered/Resolved]
  - Vomiting [Recovered/Resolved]
  - Hyponatraemia [Recovered/Resolved]

NARRATIVE: CASE EVENT DATE: 20190622
